FAERS Safety Report 7464204-6 (Version None)
Quarter: 2011Q2

REPORT INFORMATION
  Report Type: 
  Country: None (occurrence: None)
  Receive Date: 20110506
  Receipt Date: 20110429
  Transmission Date: 20111010
  Serious: Yes (Hospitalization)
  Sender: FDA-Public Use
  Company Number: PL-GENENTECH-317963

PATIENT
  Sex: Female

DRUGS (10)
  1. CYCLOPHOSPHAMIDE [Suspect]
     Indication: B-CELL LYMPHOMA
     Dosage: 1397 MG, UNK
     Route: 042
     Dates: start: 20091212, end: 20091216
  2. CYCLOPHOSPHAMIDE [Suspect]
     Dosage: UNK
     Route: 042
  3. DOXORUBICIN HCL [Suspect]
     Dosage: UNK
     Route: 042
  4. PREDNISOLONE [Suspect]
     Dosage: UNK
     Route: 048
  5. RITUXAN [Suspect]
     Dosage: UNK
     Route: 042
  6. VINCRISTINE [Suspect]
     Indication: B-CELL LYMPHOMA
     Dosage: 2 MG, UNK
     Route: 042
     Dates: start: 20100128, end: 20100201
  7. PREDNISOLONE [Suspect]
     Indication: B-CELL LYMPHOMA
     Dosage: 74 MG, UNK
     Route: 048
  8. RITUXAN [Suspect]
     Indication: B-CELL LYMPHOMA
     Dosage: 700 MG, UNK
     Route: 042
     Dates: start: 20091118, end: 20091122
  9. DOXORUBICIN HCL [Suspect]
     Indication: B-CELL LYMPHOMA
     Dosage: 93 MG, UNK
     Route: 042
     Dates: start: 20100102, end: 20100106
  10. VINCRISTINE [Suspect]
     Dosage: UNK
     Route: 042

REACTIONS (1)
  - PULMONARY EMBOLISM [None]
